FAERS Safety Report 6601246-4 (Version None)
Quarter: 2010Q1

REPORT INFORMATION
  Report Type: 
  Country: None (occurrence: None)
  Receive Date: 20100225
  Receipt Date: 20100222
  Transmission Date: 20100710
  Serious: Yes (Hospitalization)
  Sender: FDA-Public Use
  Company Number: FR-ROXANE LABORATORIES, INC.-2010-RO-00186RO

PATIENT
  Age: 37 Year
  Sex: Female

DRUGS (4)
  1. MORPHINE [Suspect]
     Indication: SPINAL ANAESTHESIA
  2. BUPIVACAINE HCL [Suspect]
     Indication: SPINAL ANAESTHESIA
  3. SUFENTANIL [Suspect]
     Indication: SPINAL ANAESTHESIA
  4. OLANZAPINE [Concomitant]
     Indication: CONVERSION DISORDER

REACTIONS (1)
  - CONVERSION DISORDER [None]
